FAERS Safety Report 5080936-1 (Version None)
Quarter: 2006Q3

REPORT INFORMATION
  Report Type: 
  Country: None (occurrence: None)
  Receive Date: 20060811
  Receipt Date: 20060810
  Transmission Date: 20061208
  Serious: Yes (Hospitalization)
  Sender: FDA-Public Use
  Company Number: 163-20785-06080051

PATIENT
  Age: 67 Year
  Sex: Male

DRUGS (10)
  1. THALOMID [Suspect]
     Indication: MULTIPLE MYELOMA
     Dosage: 100 MG, 1 IN 1 D, ORAL
     Route: 048
     Dates: start: 20060701
  2. SIMETHICONE (DIMETICONE, ACTIVATED) [Concomitant]
  3. ZOFRAN [Concomitant]
  4. LAXATIVE (LAXATIVES) [Concomitant]
  5. DECADRON [Concomitant]
  6. COMBIVENT [Concomitant]
  7. PREVACID [Concomitant]
  8. ACETAMINOPHEN [Concomitant]
  9. DILAUDID [Concomitant]
  10. DEXAMETHASONE [Concomitant]

REACTIONS (5)
  - ASTHMA [None]
  - CHRONIC OBSTRUCTIVE PULMONARY DISEASE [None]
  - DECREASED APPETITE [None]
  - PHARYNGITIS [None]
  - RESPIRATORY DISORDER [None]
